FAERS Safety Report 15053268 (Version 2)
Quarter: 2018Q2

REPORT INFORMATION
  Report Type: Spontaneous
  Country: JP (occurrence: JP)
  Receive Date: 20180622
  Receipt Date: 20180626
  Transmission Date: 20180711
  Serious: Yes (Other)
  Sender: FDA-Public Use
  Company Number: JP-JNJFOC-20180623673

PATIENT

DRUGS (1)
  1. TRAMADOL HYDROCHLORIDE AND ACETAMINOPHEN [Suspect]
     Active Substance: ACETAMINOPHEN\TRAMADOL HYDROCHLORIDE
     Indication: POSTOPERATIVE ANALGESIA
     Route: 048

REACTIONS (26)
  - Haemorrhoids [Unknown]
  - Gastrooesophageal reflux disease [Unknown]
  - Feeling abnormal [Unknown]
  - Visual acuity reduced [Unknown]
  - Vomiting [Unknown]
  - Hepatic function abnormal [Unknown]
  - Abdominal pain upper [Unknown]
  - Pruritus [Unknown]
  - Oedema [Unknown]
  - Insomnia [Unknown]
  - Gastritis [Unknown]
  - Thirst [Unknown]
  - Abdominal discomfort [Unknown]
  - Drug ineffective [Unknown]
  - Product use in unapproved indication [Unknown]
  - Malaise [Unknown]
  - Renal impairment [Unknown]
  - Somnolence [Unknown]
  - Eczema [Unknown]
  - Nausea [Unknown]
  - Off label use [Unknown]
  - Urinary retention [Unknown]
  - Abdominal pain [Unknown]
  - Dizziness [Unknown]
  - Constipation [Unknown]
  - Hallucination [Unknown]
